FAERS Safety Report 20016064 (Version 1)
Quarter: 2021Q4

REPORT INFORMATION
  Report Type: Spontaneous
  Country: US (occurrence: None)
  Receive Date: 20211102
  Receipt Date: 20211102
  Transmission Date: 20220303
  Serious: Yes (Other)
  Sender: FDA-Public Use
  Company Number: None

PATIENT
  Age: 62 Year
  Sex: Female
  Weight: 87.75 kg

DRUGS (20)
  1. HIZENTRA [Suspect]
     Active Substance: HUMAN IMMUNOGLOBULIN G
     Indication: Myasthenia gravis
     Dosage: FREQUENCY : WEEKLY;?
     Route: 058
  2. ACETAMINOPHEN [Concomitant]
  3. ALBUTEROL SULFATE [Concomitant]
  4. ALVESCO [Concomitant]
  5. antivert [Concomitant]
     Dates: start: 20210929
  6. aspirin [Concomitant]
     Dates: start: 20200213, end: 20200904
  7. augmentin [Concomitant]
     Dates: start: 20200305, end: 20200320
  8. AZELASTINE [Concomitant]
  9. b-12 active [Concomitant]
  10. C500 [Concomitant]
  11. CELEBREX [Concomitant]
  12. cellcept [Concomitant]
  13. cephalexin [Concomitant]
  14. gamunex-c [Concomitant]
  15. LEXAPRO [Concomitant]
  16. panzyga [Concomitant]
  17. plaquenil [Concomitant]
  18. PROLIA [Concomitant]
  19. TEGRETOL [Concomitant]
  20. ZORVOLEX [Concomitant]

REACTIONS (3)
  - Urticaria [None]
  - Urticaria [None]
  - Pruritus [None]

NARRATIVE: CASE EVENT DATE: 20211026
